FAERS Safety Report 6656628-1 (Version None)
Quarter: 2010Q1

REPORT INFORMATION
  Report Type: 
  Country: None (occurrence: None)
  Receive Date: 20100329
  Receipt Date: 20100317
  Transmission Date: 20100710
  Serious: Yes (Hospitalization, Other)
  Sender: FDA-Public Use
  Company Number: CH-PFIZER INC-2010034597

PATIENT
  Age: 74 Year
  Sex: Female

DRUGS (12)
  1. DETRUSITOL SR [Suspect]
     Dosage: 4 MG, 1X/DAY
  2. TEMESTA [Suspect]
     Dosage: 1 MG, 1X/DAY
  3. ELTROXIN [Suspect]
     Dosage: 0.1 MG, 1X/DAY
  4. PLENDIL [Suspect]
     Dosage: 5 MG, 1X/DAY
  5. PANTOPRAZOLE SODIUM [Suspect]
     Dosage: 40 MG, 1X/DAY
  6. CIPROXIN [Suspect]
     Dosage: 250 MG, 2X/DAY
  7. DAFALGAN [Suspect]
     Dosage: 500 MG, UNK
  8. PASPERTIN [Suspect]
     Dosage: 20 GTT, 3X/DAY
  9. KALIUM [Suspect]
  10. DIPYRONE TAB [Suspect]
     Dosage: UNK
  11. BUSCOPAN [Suspect]
     Dosage: UNK
  12. NOVABAN [Suspect]
     Dosage: UNK

REACTIONS (2)
  - ADVERSE DRUG REACTION [None]
  - BLADDER TAMPONADE [None]
